FAERS Safety Report 8525595-8 (Version None)
Quarter: 2012Q3

REPORT INFORMATION
  Report Type: 
  Country: None (occurrence: None)
  Receive Date: 20120720
  Receipt Date: 20120716
  Transmission Date: 20120928
  Serious: Yes (Hospitalization)
  Sender: FDA-Public Use
  Company Number: BR-ABBOTT-12P-020-0948521-00

PATIENT
  Sex: Female
  Weight: 13 kg

DRUGS (3)
  1. NOTUSS [Concomitant]
     Indication: COUGH
     Dosage: DROPROPIZINE + PARACETAMOL + DIPHENHYDRAMINE HYDROCHLORIDE + PSEUDOEPHEDRINE HYDROCHLORIDE
     Route: 048
     Dates: start: 20120530, end: 20120605
  2. PRELONE [Concomitant]
     Indication: COUGH
     Route: 048
     Dates: start: 20120530, end: 20120605
  3. CLARITHROMYCIN [Suspect]
     Indication: EAR INFECTION
     Route: 048
     Dates: start: 20120531, end: 20120608

REACTIONS (6)
  - PRURITUS [None]
  - EYE SWELLING [None]
  - GENERALISED ERYTHEMA [None]
  - HYPERSENSITIVITY [None]
  - DRUG ERUPTION [None]
  - OCULAR HYPERAEMIA [None]
